FAERS Safety Report 6385232-8 (Version None)
Quarter: 2009Q4

REPORT INFORMATION
  Report Type: 
  Country: None (occurrence: None)
  Receive Date: 20091002
  Receipt Date: 20080908
  Transmission Date: 20100525
  Serious: No
  Sender: FDA-Public Use
  Company Number: US-ASTRAZENECA-2008UW12973

PATIENT
  Age: 64 Year
  Sex: Female
  Weight: 83.9 kg

DRUGS (7)
  1. ARIMIDEX [Suspect]
     Indication: BREAST CANCER
     Route: 048
  2. SINGULAIR [Concomitant]
  3. ZYRTEC [Concomitant]
  4. VERAPAMIL [Concomitant]
  5. CELEBREX [Concomitant]
  6. NEXIUM [Concomitant]
     Route: 048
  7. NATAOLOL [Concomitant]

REACTIONS (4)
  - ALOPECIA [None]
  - ARTHRITIS [None]
  - MEDICATION ERROR [None]
  - PAIN IN EXTREMITY [None]
